FAERS Safety Report 25491565 (Version 1)
Quarter: 2025Q2

REPORT INFORMATION
  Report Type: Spontaneous
  Country: GB (occurrence: GB)
  Receive Date: 20250629
  Receipt Date: 20250629
  Transmission Date: 20250716
  Serious: Yes (Other)
  Sender: ORGANON
  Company Number: None

PATIENT
  Age: 9 Year
  Sex: Female

DRUGS (3)
  1. MONTELUKAST SODIUM [Suspect]
     Active Substance: MONTELUKAST SODIUM
     Indication: Asthma
     Dosage: 5MG ONCE PER DAY
     Dates: start: 202310, end: 202404
  2. SERETIDE EVOHALER [FLUTICASONE;SALMETEROL] [Concomitant]
     Indication: Asthma
  3. ALBUTEROL [Concomitant]
     Active Substance: ALBUTEROL
     Indication: Adverse drug reaction

REACTIONS (3)
  - Anxiety [Recovering/Resolving]
  - Emotional disorder [Recovering/Resolving]
  - Mood swings [Recovering/Resolving]

NARRATIVE: CASE EVENT DATE: 20231101
